FAERS Safety Report 9072622 (Version 1)
Quarter: 2013Q1

REPORT INFORMATION
  Report Type: Report from Study
  Country: US (occurrence: US)
  Receive Date: 20130129
  Receipt Date: 20130129
  Transmission Date: 20140127
  Serious: No
  Sender: FDA-Public Use
  Company Number: US-ABBOTT-12P-163-0929524-00

PATIENT
  Age: 46 Year
  Sex: Male

DRUGS (3)
  1. HUMIRA 40 MG/0.8 ML PEN [Suspect]
     Indication: PSORIASIS
     Dosage: ADMINISTER 2 INJECTIONS ON DAY 1
     Dates: start: 20120424
  2. HUMIRA 40 MG/0.8 ML PEN [Suspect]
     Dosage: 1 INJECTION ON DAY 8
  3. HUMIRA 40 MG/0.8 ML PEN [Suspect]
     Dosage: 1 INJECTION ON DAY 22, AS DIRECTED

REACTIONS (1)
  - Injection site pain [Unknown]
